FAERS Safety Report 18448889 (Version 2)
Quarter: 2021Q4

REPORT INFORMATION
  Report Type: Spontaneous
  Country: US (occurrence: US)
  Receive Date: 20201031
  Receipt Date: 20211228
  Transmission Date: 20220303
  Serious: No
  Sender: FDA-Public Use
  Company Number: US-PURDUE PHARMA-USA-2020-0151950

PATIENT
  Sex: Female

DRUGS (2)
  1. OXYCONTIN [Suspect]
     Active Substance: OXYCODONE HYDROCHLORIDE
     Indication: Product used for unknown indication
     Dosage: UNKNOWN
     Route: 048
  2. ACETAMINOPHEN\OXYCODONE HYDROCHLORIDE\OXYCODONE TEREPHTHALATE [Suspect]
     Active Substance: ACETAMINOPHEN\OXYCODONE HYDROCHLORIDE\OXYCODONE TEREPHTHALATE
     Indication: Product used for unknown indication
     Dosage: UNKNOWN
     Route: 048

REACTIONS (11)
  - Abnormal behaviour [Unknown]
  - Thinking abnormal [Unknown]
  - Crying [Unknown]
  - Speech disorder [Unknown]
  - Euphoric mood [Unknown]
  - Agitation [Unknown]
  - Hyperhidrosis [Unknown]
  - Somnolence [Unknown]
  - Abdominal discomfort [Unknown]
  - Vomiting [Unknown]
  - Drug withdrawal syndrome [Unknown]
